FAERS Safety Report 6189684-8 (Version None)
Quarter: 2009Q2

REPORT INFORMATION
  Report Type: 
  Country: None (occurrence: None)
  Receive Date: 20090512
  Receipt Date: 20090512
  Transmission Date: 20091009
  Serious: Yes (Other)
  Sender: FDA-Public Use
  Company Number: None

PATIENT
  Age: 49 Year
  Sex: Female
  Weight: 64.4108 kg

DRUGS (2)
  1. PROPRANOLOL [Suspect]
     Indication: MIGRAINE
     Dosage: 1 TIME DAILY PO
     Route: 048
     Dates: start: 19800101
  2. PROPRANOLOL [Suspect]
     Indication: TRANSIENT ISCHAEMIC ATTACK
     Dosage: 1 TIME DAILY PO
     Route: 048
     Dates: start: 19800101

REACTIONS (7)
  - ABNORMAL DREAMS [None]
  - AMNESIA [None]
  - DISORIENTATION [None]
  - DIZZINESS [None]
  - HYPOAESTHESIA [None]
  - PERIPHERAL COLDNESS [None]
  - SLUGGISHNESS [None]
